FAERS Safety Report 11651592 (Version 1)
Quarter: 2015Q4

REPORT INFORMATION
  Report Type: Spontaneous
  Country: US (occurrence: US)
  Receive Date: 20151022
  Receipt Date: 20151022
  Transmission Date: 20160304
  Serious: No
  Sender: FDA-Public Use
  Company Number: US-JNJFOC-20151002498

PATIENT
  Age: 81 Year
  Sex: Female
  Weight: 63.5 kg

DRUGS (4)
  1. PEPCID COMPLETE [Suspect]
     Active Substance: CALCIUM CARBONATE\FAMOTIDINE\MAGNESIUM HYDROXIDE
     Indication: DYSPEPSIA
     Route: 048
     Dates: start: 20151002, end: 20151002
  2. OCUVITE NOS [Concomitant]
     Indication: EYE DISORDER
     Dosage: INTERVAL: 6 YEARS
     Route: 065
  3. VITAMIN D [Concomitant]
     Active Substance: CHOLECALCIFEROL
     Indication: OSTEOPOROSIS PROPHYLAXIS
     Route: 065
  4. PEPCID COMPLETE [Suspect]
     Active Substance: CALCIUM CARBONATE\FAMOTIDINE\MAGNESIUM HYDROXIDE
     Route: 048

REACTIONS (1)
  - Throat irritation [Recovering/Resolving]

NARRATIVE: CASE EVENT DATE: 20151002
